FAERS Safety Report 4802366-7 (Version None)
Quarter: 2005Q4

REPORT INFORMATION
  Report Type: 
  Country: None (occurrence: None)
  Receive Date: 20051012
  Receipt Date: 20051006
  Transmission Date: 20060501
  Serious: Yes (Life-Threatening, Other)
  Sender: FDA-Public Use
  Company Number: DEWYE035206OCT05

PATIENT
  Age: 45 Year
  Sex: Female

DRUGS (4)
  1. VENLAFAXINE HCL [Suspect]
     Indication: DEPRESSION
     Dosage: SEE IMAGE
     Route: 048
     Dates: start: 20050912, end: 20050912
  2. VENLAFAXINE HCL [Suspect]
     Indication: DEPRESSION
     Dosage: SEE IMAGE
     Route: 048
     Dates: start: 20050701
  3. PRAVASTATIN [Concomitant]
  4. ALCOHOL (ETHANOL, O) [Suspect]
     Dosage: APPROXIMATELY 1 BOTTLE OF RED WINE
     Dates: start: 20050912, end: 20050912

REACTIONS (7)
  - ATHETOSIS [None]
  - BLOOD ALCOHOL INCREASED [None]
  - COMPLEX PARTIAL SEIZURES [None]
  - INTENTIONAL DRUG MISUSE [None]
  - LOSS OF CONSCIOUSNESS [None]
  - OVERDOSE [None]
  - SUICIDE ATTEMPT [None]
